FAERS Safety Report 4934142-9 (Version None)
Quarter: 2006Q1

REPORT INFORMATION
  Report Type: 
  Country: None (occurrence: None)
  Receive Date: 20060301
  Receipt Date: 20060214
  Transmission Date: 20060701
  Serious: Yes (Hospitalization, Disabling)
  Sender: FDA-Public Use
  Company Number: 2005-01714

PATIENT
  Age: 70 Year
  Sex: Female

DRUGS (1)
  1. VELCADE [Suspect]
     Indication: MULTIPLE MYELOMA
     Dosage: IV BOLUS
     Route: 040
     Dates: start: 20050720, end: 20050701

REACTIONS (27)
  - ANAEMIA [None]
  - ASTHENIA [None]
  - ATELECTASIS [None]
  - BIOPSY LUNG ABNORMAL [None]
  - BLOOD PH INCREASED [None]
  - CARDIAC FAILURE CONGESTIVE [None]
  - CHEST X-RAY ABNORMAL [None]
  - COUGH [None]
  - DYSPHONIA [None]
  - DYSPNOEA [None]
  - HYPERHIDROSIS [None]
  - LUNG INFILTRATION [None]
  - MITRAL VALVE INCOMPETENCE [None]
  - OEDEMA [None]
  - OEDEMA PERIPHERAL [None]
  - OXYGEN SATURATION DECREASED [None]
  - PAIN IN EXTREMITY [None]
  - PCO2 DECREASED [None]
  - PLEURAL EFFUSION [None]
  - PNEUMONITIS [None]
  - PO2 DECREASED [None]
  - PYREXIA [None]
  - RED BLOOD CELL COUNT INCREASED [None]
  - THYROID NEOPLASM [None]
  - TRICUSPID VALVE INCOMPETENCE [None]
  - VOCAL CORD PARALYSIS [None]
  - WHITE BLOOD CELL COUNT INCREASED [None]
